FAERS Safety Report 18224351 (Version 1)
Quarter: 2020Q3

REPORT INFORMATION
  Report Type: Spontaneous
  Country: US (occurrence: US)
  Receive Date: 20200902
  Receipt Date: 20200902
  Transmission Date: 20201103
  Serious: Yes (Other)
  Sender: FDA-Public Use
  Company Number: US-B.I. PHARMACEUTICALS,INC./RIDGEFIELD-2020-US-044371

PATIENT
  Sex: Male

DRUGS (2)
  1. ATROVENT [Suspect]
     Active Substance: IPRATROPIUM BROMIDE
     Dosage: TWO INHALATIONS FOUR TIMES A DAY
     Route: 065
     Dates: start: 202008
  2. ATROVENT [Suspect]
     Active Substance: IPRATROPIUM BROMIDE
     Indication: CHRONIC OBSTRUCTIVE PULMONARY DISEASE
     Dosage: TWO INHALATIONS FOUR TIMES A DAY
     Route: 065
     Dates: start: 202002, end: 202004

REACTIONS (3)
  - Pulmonary oedema [Unknown]
  - Dyspnoea [Unknown]
  - Fatigue [Unknown]
